FAERS Safety Report 11828374 (Version 1)
Quarter: 2015Q4

REPORT INFORMATION
  Report Type: Report from Study
  Country: US (occurrence: US)
  Receive Date: 20151211
  Receipt Date: 20151211
  Transmission Date: 20160305
  Serious: Yes (Other)
  Sender: FDA-Public Use
  Company Number: US-BAYER-2015-481331

PATIENT
  Age: 23 Year
  Sex: Male

DRUGS (1)
  1. ALKA-SELTZER PLUS COLD FORMULA (CHERRY BURST) [Suspect]
     Active Substance: ASPIRIN\CHLORPHENIRAMINE MALEATE\PHENYLEPHRINE BITARTRATE

REACTIONS (2)
  - Liver injury [None]
  - Abdominal discomfort [None]
